FAERS Safety Report 5762733-4 (Version None)
Quarter: 2008Q2

REPORT INFORMATION
  Report Type: 
  Country: None (occurrence: None)
  Receive Date: 20080609
  Receipt Date: 20080605
  Transmission Date: 20081010
  Serious: Yes (Other)
  Sender: FDA-Public Use
  Company Number: CN-ASTRAZENECA-2008AP04277

PATIENT
  Age: 29936 Day
  Sex: Male
  Weight: 62 kg

DRUGS (4)
  1. IRESSA [Suspect]
     Indication: LUNG NEOPLASM MALIGNANT
     Route: 048
     Dates: start: 20070210, end: 20070301
  2. IRESSA [Suspect]
     Indication: METASTASES TO BONE
     Route: 048
     Dates: start: 20070210, end: 20070301
  3. IRESSA [Suspect]
     Route: 048
     Dates: end: 20070821
  4. IRESSA [Suspect]
     Route: 048
     Dates: end: 20070821

REACTIONS (5)
  - EPIDERMAL NECROSIS [None]
  - INFECTION [None]
  - PAIN [None]
  - RASH PRURITIC [None]
  - WOUND DEHISCENCE [None]
